FAERS Safety Report 5345581-9 (Version None)
Quarter: 2007Q2

REPORT INFORMATION
  Report Type: 
  Country: None (occurrence: None)
  Receive Date: 20070601
  Receipt Date: 20070601
  Transmission Date: 20071010
  Serious: Yes (Hospitalization)
  Sender: FDA-Public Use
  Company Number: None

PATIENT
  Sex: Female
  Weight: 77.8 kg

DRUGS (1)
  1. TAXOL [Suspect]
     Dosage: 293 MG

REACTIONS (7)
  - BACTERIAL INFECTION [None]
  - FEBRILE NEUTROPENIA [None]
  - LUNG CONSOLIDATION [None]
  - LUNG INFECTION [None]
  - PANNICULITIS LOBULAR [None]
  - PULMONARY EMBOLISM [None]
  - WHITE BLOOD CELL COUNT DECREASED [None]
